FAERS Safety Report 7877307-9 (Version None)
Quarter: 2011Q4

REPORT INFORMATION
  Report Type: 
  Country: None (occurrence: None)
  Receive Date: 20111031
  Receipt Date: 20111021
  Transmission Date: 20120403
  Serious: Yes (Other)
  Sender: FDA-Public Use
  Company Number: PHHY2011US93577

PATIENT
  Age: 80 Year
  Sex: Male

DRUGS (5)
  1. CLOPIDOGREL [Concomitant]
     Dosage: UNK
  2. SIMVASTATIN [Concomitant]
     Dosage: UNK
  3. PREDNISONE [Suspect]
     Indication: EFFUSION
     Dosage: UNK
     Route: 048
  4. INSULIN [Concomitant]
     Dosage: UNK
  5. ASPIRIN [Suspect]
     Dosage: UNK

REACTIONS (6)
  - ZYGOMYCOSIS [None]
  - RASH PUSTULAR [None]
  - PAPULE [None]
  - PURPURA [None]
  - GLUCOSE TOLERANCE IMPAIRED [None]
  - RASH [None]
